FAERS Safety Report 9817540 (Version 2)
Quarter: 2014Q1

REPORT INFORMATION
  Report Type: Report from Study
  Country: US (occurrence: US)
  Receive Date: 20140115
  Receipt Date: 20140116
  Transmission Date: 20141002
  Serious: Yes (Death)
  Sender: FDA-Public Use
  Company Number: US-ROCHE-1333135

PATIENT
  Age: 72 Year
  Sex: Male
  Weight: 106.24 kg

DRUGS (12)
  1. XELODA [Suspect]
     Indication: OESOPHAGEAL CARCINOMA
     Route: 048
     Dates: start: 20131120, end: 20131204
  2. TESSALON [Concomitant]
     Indication: COUGH
     Dosage: AS NEEDED
     Route: 065
  3. ASPIRIN [Concomitant]
     Route: 048
  4. LOMOTIL (UNITED STATES) [Concomitant]
     Indication: DIARRHOEA
     Dosage: 2.5-0.025 MG, 1 TABLET BY MOUTH AS NEEDED; MAX 12 A DAY
     Route: 048
  5. MUCINEX [Concomitant]
     Route: 048
  6. NOVOLOG [Concomitant]
     Dosage: 38 UNITS EVERY MORNING BEFORE BREAKFAST, 26 UNITS BEFORE LUNCH AND 38 UNITS BEFORE DINNER.
     Route: 058
  7. MS CONTIN [Concomitant]
     Route: 048
  8. ZOFRAN [Concomitant]
     Dosage: AS NEEDED
     Route: 048
  9. ROXICODONE [Concomitant]
     Dosage: 1-2 TABLETS (5-10MG) BY MOUTH EVERY 4 HOURS AS NEEDED
     Route: 048
  10. ZOCOR [Concomitant]
     Dosage: WITH EVENING MEAL
     Route: 048
  11. TERAZOSIN HCL [Concomitant]
     Route: 048
  12. DESYREL [Concomitant]
     Route: 048

REACTIONS (2)
  - Metabolic acidosis [Fatal]
  - Diarrhoea [Fatal]
